FAERS Safety Report 19753782 (Version 1)
Quarter: 2021Q3

REPORT INFORMATION
  Report Type: Spontaneous
  Country: US (occurrence: US)
  Receive Date: 20210826
  Receipt Date: 20210826
  Transmission Date: 20211014
  Serious: Yes (Hospitalization)
  Sender: FDA-Public Use
  Company Number: None

PATIENT
  Age: 55 Year
  Sex: Male

DRUGS (14)
  1. METOPROLOL TARTRATE. [Concomitant]
     Active Substance: METOPROLOL TARTRATE
  2. AMLODIPINE [Concomitant]
     Active Substance: AMLODIPINE BESYLATE
  3. PANTOPRAZOLE [Concomitant]
     Active Substance: PANTOPRAZOLE
  4. ATORVASTATIN [Concomitant]
     Active Substance: ATORVASTATIN
  5. LEVOTHYROXIN [Concomitant]
     Active Substance: LEVOTHYROXINE
  6. OZEMPIC [Concomitant]
     Active Substance: SEMAGLUTIDE
  7. IBUPROFEN. [Concomitant]
     Active Substance: IBUPROFEN
  8. JARDIANCE [Concomitant]
     Active Substance: EMPAGLIFLOZIN
  9. POLY?IRON [Concomitant]
     Active Substance: IRON
  10. COSENTYX [Suspect]
     Active Substance: SECUKINUMAB
     Indication: PSORIASIS
     Route: 058
     Dates: start: 20190801
  11. LANTUS [Concomitant]
     Active Substance: INSULIN GLARGINE
  12. BRILINTA [Concomitant]
     Active Substance: TICAGRELOR
  13. SUCRALFATE. [Concomitant]
     Active Substance: SUCRALFATE
  14. METFORMIN [Concomitant]
     Active Substance: METFORMIN HYDROCHLORIDE

REACTIONS (1)
  - COVID-19 [None]

NARRATIVE: CASE EVENT DATE: 20210818
